FAERS Safety Report 14017204 (Version 2)
Quarter: 2017Q4

REPORT INFORMATION
  Report Type: Report from Study
  Country: IL (occurrence: IL)
  Receive Date: 20170927
  Receipt Date: 20171006
  Transmission Date: 20180321
  Serious: Yes (Hospitalization)
  Sender: FDA-Public Use
  Company Number: IL-BRISTOL-MYERS SQUIBB COMPANY-BMS-2017-047800

PATIENT
  Age: 53 Year
  Sex: Male
  Weight: 100 kg

DRUGS (3)
  1. BLINDED IPILIMUMAB [Suspect]
     Active Substance: IPILIMUMAB
     Indication: SMALL CELL LUNG CANCER EXTENSIVE STAGE
     Dosage: 1 DF, UNK
     Route: 042
     Dates: start: 20170430, end: 20170514
  2. BLINDED NIVOLUMAB [Suspect]
     Active Substance: NIVOLUMAB
     Indication: SMALL CELL LUNG CANCER EXTENSIVE STAGE
     Dosage: 1 DF, UNK
     Route: 042
     Dates: start: 20170430, end: 20170514
  3. BLINDED PLACEBO [Suspect]
     Active Substance: INVESTIGATIONAL PRODUCT
     Indication: SMALL CELL LUNG CANCER EXTENSIVE STAGE
     Dosage: 1 DF, UNK
     Route: 042
     Dates: start: 20170430, end: 20170514

REACTIONS (3)
  - Colitis [Recovered/Resolved]
  - Enteritis [Recovered/Resolved]
  - Gastroenteritis [Recovered/Resolved]

NARRATIVE: CASE EVENT DATE: 20170523
